FAERS Safety Report 17076790 (Version 1)
Quarter: 2019Q4

REPORT INFORMATION
  Report Type: Spontaneous
  Country: FR (occurrence: FR)
  Receive Date: 20191126
  Receipt Date: 20191126
  Transmission Date: 20200122
  Serious: Yes (Hospitalization, Other)
  Sender: FDA-Public Use
  Company Number: FR-BAUSCH-BL-2019-062794

PATIENT
  Age: 50 Year
  Sex: Male

DRUGS (3)
  1. METFORMIN [Suspect]
     Active Substance: METFORMIN HYDROCHLORIDE
     Indication: PRODUCT USED FOR UNKNOWN INDICATION
     Dosage: UNK
     Route: 065
  2. CRESTOR [Suspect]
     Active Substance: ROSUVASTATIN CALCIUM
     Indication: PRODUCT USED FOR UNKNOWN INDICATION
     Dosage: UNK
     Route: 065
  3. JANUMET [Suspect]
     Active Substance: METFORMIN HYDROCHLORIDE\SITAGLIPTIN PHOSPHATE
     Indication: DIABETES MELLITUS
     Dosage: 1 TABLET, QD
     Route: 048

REACTIONS (9)
  - Dehydration [Unknown]
  - Inappropriate schedule of product administration [Unknown]
  - Glycosylated haemoglobin increased [Unknown]
  - Vision blurred [Unknown]
  - Polydipsia [Unknown]
  - Muscle spasms [Recovered/Resolved]
  - Hyperglycaemia [Unknown]
  - Diabetic metabolic decompensation [Unknown]
  - Dry mouth [Unknown]
